FAERS Safety Report 21816613 (Version 1)
Quarter: 2023Q1

REPORT INFORMATION
  Report Type: Report from Study
  Country: FR (occurrence: None)
  Receive Date: 20230104
  Receipt Date: 20230104
  Transmission Date: 20230418
  Serious: Yes (Hospitalization, Other)
  Sender: FDA-Public Use
  Company Number: FR-Merck Healthcare KGaA-9375551

PATIENT
  Age: 59 Year
  Sex: Female

DRUGS (1)
  1. LEVOTHYROXINE [Suspect]
     Active Substance: LEVOTHYROXINE
     Indication: Product used for unknown indication
     Dosage: FOR 30 YEARS

REACTIONS (22)
  - Dehydration [Unknown]
  - Cataract [Unknown]
  - Balance disorder [Unknown]
  - Eye inflammation [Unknown]
  - Disturbance in attention [Unknown]
  - Dizziness [Unknown]
  - Tinnitus [Unknown]
  - Oral discomfort [Unknown]
  - Pain in extremity [Unknown]
  - Irritable bowel syndrome [Unknown]
  - Feeling hot [Unknown]
  - Chest pain [Unknown]
  - Speech disorder [Unknown]
  - Fatigue [Unknown]
  - Amnesia [Unknown]
  - Dysphonia [Unknown]
  - Blood thyroid stimulating hormone increased [Unknown]
  - Feeling cold [Unknown]
  - Hypophagia [Unknown]
  - Diarrhoea [Unknown]
  - Palpitations [Unknown]
  - Blood thyroid stimulating hormone decreased [Unknown]

NARRATIVE: CASE EVENT DATE: 20170601
